FAERS Safety Report 6601768-6 (Version None)
Quarter: 2010Q1

REPORT INFORMATION
  Report Type: 
  Country: None (occurrence: None)
  Receive Date: 20100225
  Receipt Date: 20081212
  Transmission Date: 20100710
  Serious: No
  Sender: FDA-Public Use
  Company Number: US-BRISTOL-MYERS SQUIBB COMPANY-14443527

PATIENT
  Sex: Female
  Weight: 84 kg

DRUGS (2)
  1. ORENCIA [Suspect]
     Dosage: INFUSED OVER 15MINUTES.
     Route: 042
     Dates: start: 20081212
  2. TYLENOL-500 [Concomitant]
     Indication: PREMEDICATION

REACTIONS (1)
  - DRUG ADMINISTRATION ERROR [None]
